FAERS Safety Report 8462185-X (Version None)
Quarter: 2012Q2

REPORT INFORMATION
  Report Type: 
  Country: None (occurrence: None)
  Receive Date: 20120625
  Receipt Date: 20120618
  Transmission Date: 20120825
  Serious: Yes (Hospitalization, Other)
  Sender: FDA-Public Use
  Company Number: PHHY2011DE098367

PATIENT
  Sex: Male
  Weight: 49 kg

DRUGS (6)
  1. TRUXAL [Concomitant]
     Indication: AGITATION
     Dosage: 90 MG, QD
     Dates: start: 20110903, end: 20111026
  2. RISPERDAL [Concomitant]
     Indication: SCHIZOPHRENIA, PARANOID TYPE
     Dosage: 2 MG, QD
     Dates: start: 20110901, end: 20111026
  3. CLOZAPINE [Suspect]
     Indication: SCHIZOPHRENIA, PARANOID TYPE
     Dosage: 225 MG, QD
     Route: 048
     Dates: start: 20111021, end: 20111026
  4. HALDOL [Concomitant]
     Dosage: 1 DF, QD
  5. LORAZEPAM [Concomitant]
     Dosage: 3 DF, QD
  6. METOPROLOL TARTRATE [Concomitant]
     Indication: TACHYCARDIA

REACTIONS (8)
  - TACHYCARDIA [None]
  - CARDIAC FAILURE [None]
  - ARRHYTHMIA [None]
  - EOSINOPHILIA [None]
  - INFLAMMATORY MARKER INCREASED [None]
  - ELECTROCARDIOGRAM QT INTERVAL ABNORMAL [None]
  - EJECTION FRACTION DECREASED [None]
  - EXTRASYSTOLES [None]
